FAERS Safety Report 20653856 (Version 1)
Quarter: 2022Q1

REPORT INFORMATION
  Report Type: Spontaneous
  Country: US (occurrence: US)
  Receive Date: 20220330
  Receipt Date: 20220330
  Transmission Date: 20220423
  Serious: Yes (Hospitalization, Other)
  Sender: FDA-Public Use
  Company Number: US-INTRA-CELLULAR THERAPIES, INC.-2022ICT00232

PATIENT
  Age: 21 Year
  Sex: Male

DRUGS (3)
  1. CAPLYTA [Suspect]
     Active Substance: LUMATEPERONE
     Indication: Schizophrenia
     Dosage: 42 MG, 1X/DAY
     Route: 048
  2. CAPLYTA [Suspect]
     Active Substance: LUMATEPERONE
     Dosage: UNK
  3. PIMOZIDE [Suspect]
     Active Substance: PIMOZIDE

REACTIONS (5)
  - Appendicitis [Recovered/Resolved]
  - Sepsis [Recovered/Resolved]
  - Negative symptoms in schizophrenia [Not Recovered/Not Resolved]
  - Procedural complication [Unknown]
  - Drug ineffective [Not Recovered/Not Resolved]
